FAERS Safety Report 7237904-0 (Version None)
Quarter: 2011Q1

REPORT INFORMATION
  Report Type: 
  Country: None (occurrence: None)
  Receive Date: 20110121
  Receipt Date: 20110114
  Transmission Date: 20110831
  Serious: Yes (Life-Threatening, Hospitalization, Other)
  Sender: FDA-Public Use
  Company Number: DE-PFIZER INC-2011006279

PATIENT
  Age: 87 Year
  Sex: Female
  Weight: 63 kg

DRUGS (13)
  1. PANTOZOL [Suspect]
     Dosage: 40 MG, 1X/DAY
     Route: 048
     Dates: start: 20100827, end: 20100828
  2. FENTANYL [Concomitant]
     Indication: GENERAL ANAESTHESIA
     Dosage: 0.1 MG, UNK
     Route: 042
  3. CEFAZOLIN [Suspect]
     Dosage: 2 G, 2X/DAY
     Route: 042
     Dates: start: 20100824, end: 20100827
  4. CEFAZOLIN [Suspect]
     Dosage: 2 G, 1X/DAY
     Route: 042
     Dates: start: 20100828, end: 20100828
  5. PANTOZOL [Suspect]
     Dosage: 40 MG, 2X/DAY
     Route: 048
     Dates: start: 20100914, end: 20101003
  6. PANTOZOL [Suspect]
     Dosage: 40 MG, 1X/DAY
     Route: 048
     Dates: start: 20101004, end: 20101015
  7. IBU ^RATIOPHARM^ [Suspect]
     Dosage: 1 DF, 2X/DAY
     Route: 048
     Dates: start: 20100823, end: 20100823
  8. IBU ^RATIOPHARM^ [Suspect]
     Dosage: 1 DF, 4X/DAY
     Route: 048
     Dates: start: 20100824, end: 20100826
  9. PROPOFOL [Concomitant]
     Indication: GENERAL ANAESTHESIA
     Dosage: 150 MG, UNK
     Route: 042
  10. ISOFLURANE [Concomitant]
     Indication: GENERAL ANAESTHESIA
  11. PANTOZOL [Suspect]
     Dosage: 20 MG, 1X/DAY
     Route: 048
     Dates: start: 20100824, end: 20100826
  12. METAMIZOLE SODIUM [Concomitant]
     Indication: GENERAL ANAESTHESIA
     Dosage: 1 G, UNK
     Route: 042
  13. CEFAZOLIN [Suspect]
     Dosage: 2 G, 1X/DAY
     Route: 042
     Dates: start: 20100823, end: 20100823

REACTIONS (1)
  - RENAL FAILURE ACUTE [None]
